FAERS Safety Report 4762552-1 (Version None)
Quarter: 2005Q3

REPORT INFORMATION
  Report Type: 
  Country: None (occurrence: None)
  Receive Date: 20050907
  Receipt Date: 20050823
  Transmission Date: 20060218
  Serious: Yes (Hospitalization)
  Sender: FDA-Public Use
  Company Number: HQWYE088924AUG05

PATIENT
  Sex: Female
  Weight: 60 kg

DRUGS (4)
  1. ENBREL [Suspect]
     Indication: RHEUMATOID ARTHRITIS
     Route: 058
     Dates: start: 20040225
  2. MEDROL [Concomitant]
     Indication: RHEUMATOID ARTHRITIS
     Dosage: 4 MG AT UNKNOWN FREQUENCY
  3. UNSPECIFIED ANTIHYPERTENSIVE AGENT [Concomitant]
     Indication: HYPERTENSION
  4. GLICLAZIDE [Concomitant]
     Indication: DIABETES MELLITUS

REACTIONS (4)
  - CHILLS [None]
  - HEMIPARESIS [None]
  - PYREXIA [None]
  - SYNOVITIS [None]
